FAERS Safety Report 15748053 (Version 1)
Quarter: 2018Q4

REPORT INFORMATION
  Report Type: Report from Study
  Country: US (occurrence: US)
  Receive Date: 20181221
  Receipt Date: 20181221
  Transmission Date: 20190205
  Serious: No
  Sender: FDA-Public Use
  Company Number: PHEH2018US052877

PATIENT
  Sex: Female

DRUGS (1)
  1. ENTRESTO [Suspect]
     Active Substance: SACUBITRIL\VALSARTAN
     Indication: PRODUCT USED FOR UNKNOWN INDICATION
     Dosage: 100 MG (SACUBITRIL 49 MG/ VALSARTAN 51 MG), BID
     Route: 065

REACTIONS (9)
  - Weight decreased [Unknown]
  - Dysstasia [Unknown]
  - Bone density decreased [Unknown]
  - Asthenia [Unknown]
  - Fatigue [Unknown]
  - Product prescribing error [Unknown]
  - Nausea [Unknown]
  - Wrong technique in product usage process [Unknown]
  - Pain [Unknown]
